FAERS Safety Report 17265033 (Version 1)
Quarter: 2020Q1

REPORT INFORMATION
  Report Type: Spontaneous
  Country: RU (occurrence: RU)
  Receive Date: 20200113
  Receipt Date: 20200113
  Transmission Date: 20200409
  Serious: Yes (Death, Life-Threatening, Hospitalization, Other)
  Sender: FDA-Public Use
  Company Number: RU-STRIDES ARCOLAB LIMITED-2020SP000176

PATIENT
  Age: 9 Month
  Sex: Female

DRUGS (3)
  1. IBUPROFEN. [Suspect]
     Active Substance: IBUPROFEN
     Dosage: UNK, REPEATED DOSE OF IBUPROFEN SUSPENSION
     Route: 065
  2. IBUPROFEN. [Suspect]
     Active Substance: IBUPROFEN
     Indication: PYREXIA
     Dosage: UNK, AGE SPECIFIC DOSE OF IBUPROFEN SUSPENSION
     Route: 048
  3. IBUPROFEN. [Suspect]
     Active Substance: IBUPROFEN
     Dosage: 3 DOSAGE FORM, TOTAL SUSPENSION
     Route: 048

REACTIONS (10)
  - Hypoalbuminaemia [Unknown]
  - Metabolic acidosis [Unknown]
  - Condition aggravated [Fatal]
  - Respiratory distress [Fatal]
  - Vomiting [Unknown]
  - Necrosis [Unknown]
  - Reye^s syndrome [Fatal]
  - Pneumonia influenzal [Fatal]
  - Purpura [Unknown]
  - Loss of consciousness [Unknown]

NARRATIVE: CASE EVENT DATE: 2016
